FAERS Safety Report 4315513-0 (Version None)
Quarter: 2004Q1

REPORT INFORMATION
  Report Type: 
  Country: None (occurrence: None)
  Receive Date: 20040311
  Receipt Date: 20040224
  Transmission Date: 20041129
  Serious: Yes (Death)
  Sender: FDA-Public Use
  Company Number: WAES 0402USA01838

PATIENT
  Age: 73 Year
  Sex: Female

DRUGS (11)
  1. CODEINE AND ACETAMINOPHEN [Concomitant]
  2. LOTREL [Concomitant]
  3. CLORPRES [Concomitant]
     Route: 048
  4. COLCHICINE [Concomitant]
     Route: 048
  5. PREMARIN [Concomitant]
     Route: 048
  6. ALLEGRA [Concomitant]
  7. SYNTHROID [Concomitant]
     Route: 048
  8. MAGNESIUM SULFATE [Concomitant]
     Route: 048
  9. ALDOMET [Concomitant]
     Route: 048
  10. POTASSIUM CHLORIDE [Concomitant]
     Route: 048
  11. VIOXX [Suspect]
     Route: 048
     Dates: start: 20020111, end: 20030310

REACTIONS (25)
  - AGE INDETERMINATE MYOCARDIAL INFARCTION [None]
  - ANXIETY [None]
  - ASTHENIA [None]
  - BLOOD PRESSURE FLUCTUATION [None]
  - BUNDLE BRANCH BLOCK RIGHT [None]
  - CARDIAC ARREST [None]
  - CHEST DISCOMFORT [None]
  - COLD SWEAT [None]
  - CYANOSIS [None]
  - DYSPNOEA [None]
  - ELECTROCARDIOGRAM QRS COMPLEX ABNORMAL [None]
  - ERYTHEMA [None]
  - ESSENTIAL HYPERTENSION [None]
  - HYPOTHYROIDISM [None]
  - MYOCARDIAL INFARCTION [None]
  - NAUSEA [None]
  - OEDEMA PERIPHERAL [None]
  - OXYGEN SATURATION DECREASED [None]
  - PALLOR [None]
  - RESTLESSNESS [None]
  - SINUS TACHYCARDIA [None]
  - SWELLING FACE [None]
  - VENTRICULAR EXTRASYSTOLES [None]
  - VENTRICULAR FIBRILLATION [None]
  - WHEEZING [None]
